FAERS Safety Report 21588666 (Version 1)
Quarter: 2022Q4

REPORT INFORMATION
  Report Type: Report from Study
  Country: US (occurrence: US)
  Receive Date: 20221114
  Receipt Date: 20221114
  Transmission Date: 20230113
  Serious: No
  Sender: FDA-Public Use
  Company Number: US-ABBVIE-4167366

PATIENT
  Age: 74 Year
  Sex: Male

DRUGS (1)
  1. SKYRIZI [Suspect]
     Active Substance: RISANKIZUMAB-RZAA
     Indication: Psoriasis
     Dosage: FORM STRENGTH WAS 150 MILLIGRAMS?WEEK 0
     Route: 058
     Dates: start: 20221014, end: 20221014

REACTIONS (2)
  - Asthma [Unknown]
  - Psoriasis [Unknown]

NARRATIVE: CASE EVENT DATE: 20221014
